FAERS Safety Report 8404763-X (Version None)
Quarter: 2012Q2

REPORT INFORMATION
  Report Type: 
  Country: None (occurrence: None)
  Receive Date: 20120601
  Receipt Date: 20111219
  Transmission Date: 20120825
  Serious: No
  Sender: FDA-Public Use
  Company Number: US-NOVEN-11US003825

PATIENT
  Age: 7 Year
  Sex: Male
  Weight: 30.385 kg

DRUGS (1)
  1. DAYTRANA [Suspect]
     Indication: DISTURBANCE IN ATTENTION
     Dosage: 10 MG, QD
     Route: 062
     Dates: start: 20111119

REACTIONS (4)
  - PRODUCT QUALITY ISSUE [None]
  - OFF LABEL USE [None]
  - DRUG ADMINISTRATION ERROR [None]
  - DRUG INEFFECTIVE [None]
